FAERS Safety Report 10822749 (Version 3)
Quarter: 2016Q1

REPORT INFORMATION
  Report Type: Report from Study
  Country: US (occurrence: US)
  Receive Date: 20150218
  Receipt Date: 20160201
  Transmission Date: 20160525
  Serious: No
  Sender: FDA-Public Use
  Company Number: US-ABBVIE-14K-163-1309851-00

PATIENT
  Age: 55 Year
  Sex: Female

DRUGS (3)
  1. FUROSEMIDE. [Concomitant]
     Active Substance: FUROSEMIDE
     Indication: PRODUCT USED FOR UNKNOWN INDICATION
  2. HUMIRA [Suspect]
     Active Substance: ADALIMUMAB
     Indication: PSORIASIS
     Route: 065
     Dates: end: 201405
  3. HUMIRA [Suspect]
     Active Substance: ADALIMUMAB
     Route: 065
     Dates: start: 201409

REACTIONS (4)
  - Pruritus [Not Recovered/Not Resolved]
  - Paraesthesia [Not Recovered/Not Resolved]
  - Psoriasis [Not Recovered/Not Resolved]
  - Hypoaesthesia [Not Recovered/Not Resolved]

NARRATIVE: CASE EVENT DATE: 201409
